FAERS Safety Report 19196628 (Version 1)
Quarter: 2021Q2

REPORT INFORMATION
  Report Type: Spontaneous
  Country: US (occurrence: US)
  Receive Date: 20210429
  Receipt Date: 20210429
  Transmission Date: 20210717
  Serious: No
  Sender: FDA-Public Use
  Company Number: US-PERRIGO-20US016957

PATIENT
  Age: 83 Year
  Sex: Female
  Weight: 54.42 kg

DRUGS (16)
  1. CARVEDILOL. [Concomitant]
     Active Substance: CARVEDILOL
     Indication: HYPERTENSION
     Dosage: UNKNOWN, UNKNOWN
     Route: 065
     Dates: start: 2011
  2. CHOLESTOFF ORIGINAL [Concomitant]
     Indication: HYPERLIPIDAEMIA
     Dosage: UNKNOWN, UNKNOWN
     Route: 065
     Dates: start: 2018
  3. TRIAMCINOLONE ACETONIDE. [Suspect]
     Active Substance: TRIAMCINOLONE ACETONIDE
     Indication: ERYTHEMA
     Dosage: THIN FILM, BID
     Route: 061
     Dates: start: 20201112, end: 20201113
  4. TRIAMCINOLONE ACETONIDE. [Suspect]
     Active Substance: TRIAMCINOLONE ACETONIDE
     Indication: URTICARIA
     Dosage: THIN FILM, SINGLE
     Route: 061
     Dates: start: 20201114, end: 20201114
  5. CLOBETASOL [Concomitant]
     Active Substance: CLOBETASOL
     Indication: PSORIASIS
     Dosage: UNKNOWN, UNKNOWN
     Route: 065
     Dates: start: 2006
  6. TRIAMCINOLONE ACETONIDE. [Suspect]
     Active Substance: TRIAMCINOLONE ACETONIDE
     Indication: DERMATITIS CONTACT
  7. LUMIGAN [Concomitant]
     Active Substance: BIMATOPROST
     Indication: GLAUCOMA
     Dosage: UNKNOWN, UNKNOWN
     Route: 065
     Dates: start: 2010
  8. HYDROCHLOROTHIAZIDE. [Concomitant]
     Active Substance: HYDROCHLOROTHIAZIDE
     Indication: POLYURIA
     Dosage: UNKNOWN, UNKNOWN
     Route: 065
     Dates: start: 2013
  9. LEVOTHYROXINE. [Concomitant]
     Active Substance: LEVOTHYROXINE
     Indication: HYPOTHYROIDISM
     Dosage: UNKNOWN, UNKNOWN
     Route: 065
     Dates: start: 2014
  10. ELIQUIS [Concomitant]
     Active Substance: APIXABAN
     Indication: ATRIAL FIBRILLATION
     Dosage: UNKNOWN, UNKNOWN
     Route: 065
     Dates: start: 202008
  11. ESTRADIOL                          /00045402/ [Concomitant]
     Active Substance: ESTRADIOL VALERATE
     Indication: VAGINAL INFECTION
     Dosage: UNKNOWN, UNKNOWN
     Route: 065
     Dates: start: 2010
  12. OCUVITE [Concomitant]
     Active Substance: VITAMINS
     Indication: GLAUCOMA
     Dosage: UNKNOWN, UNKNOWN
     Route: 065
     Dates: start: 2013
  13. FISH OIL [Concomitant]
     Active Substance: FISH OIL
     Indication: SUPPLEMENTATION THERAPY
     Dosage: UNKNOWN, UNKNOWN
     Route: 065
  14. TRIAMCINOLONE ACETONIDE. [Suspect]
     Active Substance: TRIAMCINOLONE ACETONIDE
     Indication: PRURITUS
     Dosage: THIN FILM, SINGLE
     Route: 061
     Dates: start: 20201111, end: 20201111
  15. ALENDRONATE [Concomitant]
     Active Substance: ALENDRONATE SODIUM
     Indication: OSTEOPOROSIS
     Dosage: UNKNOWN, UNKNOWN
     Route: 065
     Dates: start: 2016
  16. COMBIGAN [Concomitant]
     Active Substance: BRIMONIDINE TARTRATE\TIMOLOL MALEATE
     Indication: DERMATITIS
     Dosage: UNKNOWN, UNKNOWN
     Route: 065
     Dates: start: 202008

REACTIONS (1)
  - Application site pain [Recovered/Resolved]

NARRATIVE: CASE EVENT DATE: 20201111
